FAERS Safety Report 8307991-7 (Version None)
Quarter: 2012Q2

REPORT INFORMATION
  Report Type: 
  Country: None (occurrence: None)
  Receive Date: 20120424
  Receipt Date: 20120416
  Transmission Date: 20120825
  Serious: No
  Sender: FDA-Public Use
  Company Number: JP-GLAXOSMITHKLINE-B0794941A

PATIENT
  Age: 3 Decade
  Sex: Male

DRUGS (2)
  1. PAXIL [Suspect]
     Dosage: 40MG PER DAY
     Route: 048
  2. PAXIL [Suspect]
     Indication: DEPRESSION
     Dosage: 20MG PER DAY
     Route: 048

REACTIONS (1)
  - MICTURITION DISORDER [None]
